FAERS Safety Report 14824257 (Version 1)
Quarter: 2018Q2

REPORT INFORMATION
  Report Type: Other
  Country: CZ (occurrence: CZ)
  Receive Date: 20180429
  Receipt Date: 20180429
  Transmission Date: 20180711
  Serious: Yes (Other)
  Sender: FDA-Public Use
  Company Number: CZ-DEXPHARM-20180277

PATIENT
  Age: 73 Year
  Sex: Female

DRUGS (9)
  1. ANOPYRIN [Suspect]
     Active Substance: ASPIRIN
     Indication: PROPHYLAXIS
     Dosage: HALF TABLET- 50MG ONCE DAILY
  2. ELIQUIS [Suspect]
     Active Substance: APIXABAN
  3. OMEPRAZOLE- NOT DEXCEL^S PRODUCT [Suspect]
     Active Substance: OMEPRAZOLE
     Indication: PROPHYLAXIS
  4. CYNT [Concomitant]
     Indication: ATRIAL FIBRILLATION
     Dosage: HALF TABLET TWICE DAY AND ONE TABLET ONCE A DAY- TOTAL 0.8MG
  5. ALFACALCIDOL [Concomitant]
     Active Substance: ALFACALCIDOL
  6. PRESNISON LECIVA [Concomitant]
     Indication: BOWEN^S DISEASE
     Dates: start: 2008
  7. SIROLIMUS. [Concomitant]
     Active Substance: SIROLIMUS
     Indication: BOWEN^S DISEASE
  8. DOXAZOSIN [Concomitant]
     Active Substance: DOXAZOSIN\DOXAZOSIN MESYLATE
     Dosage: HALF TABLET IN THE MORNING AND ONE TABLET IN THE EVENING
  9. PROTELOS [Concomitant]
     Active Substance: STRONTIUM RANELATE
     Route: 048

REACTIONS (1)
  - Gastrointestinal toxicity [Unknown]
